FAERS Safety Report 20994135 (Version 1)
Quarter: 2022Q2

REPORT INFORMATION
  Report Type: Spontaneous
  Country: IT (occurrence: IT)
  Receive Date: 20220622
  Receipt Date: 20220622
  Transmission Date: 20220721
  Serious: Yes (Hospitalization)
  Sender: FDA-Public Use
  Company Number: IT-MYLANLABS-2022M1046410

PATIENT
  Age: 64 Year
  Sex: Female

DRUGS (6)
  1. FONDAPARINUX [Suspect]
     Active Substance: FONDAPARINUX
     Indication: Thrombosis with thrombocytopenia syndrome
     Dosage: 5 MILLIGRAM, QD
  2. FONDAPARINUX [Suspect]
     Active Substance: FONDAPARINUX
     Dosage: 7.5 MILLIGRAM, QD
  3. DEXAMETHASONE [Suspect]
     Active Substance: DEXAMETHASONE
     Indication: Thrombosis with thrombocytopenia syndrome
     Dosage: 40 MILLIGRAM, QD
  4. HUMAN IMMUNOGLOBULIN G [Suspect]
     Active Substance: HUMAN IMMUNOGLOBULIN G
     Indication: Thrombosis with thrombocytopenia syndrome
     Dosage: UNK, CYCLE (DOSE: 1 G/KG; RECEIVED 2 CYCLES)
     Route: 042
  5. ARGATROBAN [Suspect]
     Active Substance: ARGATROBAN
     Indication: Thrombosis with thrombocytopenia syndrome
     Dosage: UNK (CONTINUOUS INFUSION)
  6. METHYLPREDNISOLONE [Suspect]
     Active Substance: METHYLPREDNISOLONE
     Indication: Thrombosis with thrombocytopenia syndrome
     Dosage: UNK (1G/DAY FOR 2 DAYS)

REACTIONS (1)
  - Drug ineffective [Unknown]
